FAERS Safety Report 8909551 (Version 1)
Quarter: 2012Q4

REPORT INFORMATION
  Report Type: Spontaneous
  Country: US (occurrence: None)
  Receive Date: 20121107
  Receipt Date: 20121107
  Transmission Date: 20130627
  Serious: Yes (Other)
  Sender: FDA-Public Use
  Company Number: AUR-APL-2012-04768

PATIENT
  Age: 71 Year
  Sex: Female

DRUGS (2)
  1. LISINOPRIL TABLETS [Suspect]
     Indication: DRUG USE FOR UNKNOWN INDICATION
     Dosage: Unknown
  2. CELEBREX [Suspect]
     Indication: ARTHRITIS
     Dosage: (200 mg, 1 D), Unknown
     Dates: end: 2012

REACTIONS (2)
  - Cough [None]
  - Nephropathy [None]
